FAERS Safety Report 20236982 (Version 1)
Quarter: 2021Q4

REPORT INFORMATION
  Report Type: Spontaneous
  Country: US (occurrence: US)
  Receive Date: 20211228
  Receipt Date: 20211228
  Transmission Date: 20220304
  Serious: Yes (Other)
  Sender: FDA-Public Use
  Company Number: US-GYP-000975

PATIENT
  Age: 75 Year
  Sex: Female

DRUGS (1)
  1. PREDNISONE [Suspect]
     Active Substance: PREDNISONE
     Indication: Polymyositis
     Route: 065

REACTIONS (3)
  - Human herpesvirus 6 encephalitis [Recovered/Resolved]
  - Ischaemia [Unknown]
  - Acute kidney injury [Unknown]
